FAERS Safety Report 4552217-3 (Version None)
Quarter: 2004Q4

REPORT INFORMATION
  Report Type: 
  Country: None (occurrence: None)
  Receive Date: 20041217
  Receipt Date: 20040809
  Transmission Date: 20050328
  Serious: No
  Sender: FDA-Public Use
  Company Number: 2004-BP-06619BP

PATIENT
  Age: 75 Year
  Sex: Male

DRUGS (11)
  1. SPIRIVA [Suspect]
     Indication: CHRONIC OBSTRUCTIVE AIRWAYS DISEASE
     Dosage: 18 MCG (18 MCG, OD), IH
     Route: 055
     Dates: start: 20040721, end: 20040807
  2. SPIRIVA [Suspect]
  3. CREON [Concomitant]
  4. LISINOPRIL/ HCTZ (PRINZIDE) [Concomitant]
  5. SOTALO/HCL (SOTALOL HYDROCHLORIDE) [Concomitant]
  6. LIPITOR [Concomitant]
  7. PREVACID [Concomitant]
  8. LISINOPRIL [Concomitant]
  9. ACETYLSALICYLIC ACID SRT [Concomitant]
  10. ALBUTEROL [Concomitant]
  11. WARWICK [Concomitant]

REACTIONS (2)
  - COUGH [None]
  - URINE ABNORMALITY [None]
